FAERS Safety Report 7492531-5 (Version None)
Quarter: 2011Q2

REPORT INFORMATION
  Report Type: 
  Country: None (occurrence: None)
  Receive Date: 20110519
  Receipt Date: 20110516
  Transmission Date: 20111010
  Serious: Yes (Death, Other)
  Sender: FDA-Public Use
  Company Number: CA-PFIZER INC-2011058875

PATIENT
  Age: 42 Year
  Sex: Female
  Weight: 70.748 kg

DRUGS (2)
  1. ALCOHOL [Suspect]
     Indication: ALCOHOL USE
     Dosage: UNK
     Route: 048
     Dates: start: 20101204
  2. PRISTIQ [Suspect]
     Indication: DEPRESSION
     Dosage: 50 MG, 1X/DAY
     Route: 048
     Dates: start: 20100607

REACTIONS (2)
  - IRRITABILITY [None]
  - COMPLETED SUICIDE [None]
